FAERS Safety Report 13854301 (Version 2)
Quarter: 2017Q3

REPORT INFORMATION
  Report Type: Spontaneous
  Country: FR (occurrence: FR)
  Receive Date: 20170809
  Receipt Date: 20170911
  Transmission Date: 20171127
  Serious: Yes (Hospitalization, Disabling, Congenital Anomaly, Other)
  Sender: FDA-Public Use
  Company Number: FR-ABBVIE-17P-056-2066894-00

PATIENT
  Sex: Male

DRUGS (1)
  1. DEPAKINE [Suspect]
     Active Substance: VALPROATE SODIUM
     Indication: FOETAL EXPOSURE TIMING UNSPECIFIED
     Route: 064

REACTIONS (21)
  - Epilepsy [Unknown]
  - Neurodevelopmental disorder [Not Recovered/Not Resolved]
  - Stereotypy [Not Recovered/Not Resolved]
  - Otitis media [Unknown]
  - Psychomotor retardation [Not Recovered/Not Resolved]
  - Autism spectrum disorder [Not Recovered/Not Resolved]
  - Gross motor delay [Not Recovered/Not Resolved]
  - Speech disorder developmental [Not Recovered/Not Resolved]
  - Foetal exposure during pregnancy [Unknown]
  - Staring [Unknown]
  - Frustration tolerance decreased [Not Recovered/Not Resolved]
  - Joint laxity [Not Recovered/Not Resolved]
  - Dysmorphism [Not Recovered/Not Resolved]
  - Ill-defined disorder [Unknown]
  - Disturbance in social behaviour [Not Recovered/Not Resolved]
  - Communication disorder [Not Recovered/Not Resolved]
  - Learning disability [Not Recovered/Not Resolved]
  - Bronchiolitis [Unknown]
  - Asthenia [Unknown]
  - Decreased interest [Not Recovered/Not Resolved]
  - Congenital foot malformation [Not Recovered/Not Resolved]
